FAERS Safety Report 11677843 (Version 1)
Quarter: 2015Q4

REPORT INFORMATION
  Report Type: Spontaneous
  Country: US (occurrence: US)
  Receive Date: 20151027
  Receipt Date: 20151027
  Transmission Date: 20160304
  Serious: No
  Sender: FDA-Public Use
  Company Number: US-ELI_LILLY_AND_COMPANY-US201006001267

PATIENT
  Age: 69 Year
  Sex: Female

DRUGS (2)
  1. FORTEO [Suspect]
     Active Substance: TERIPARATIDE
     Dosage: 20 UG, DAILY (1/D)
     Dates: start: 201007
  2. FORTEO [Suspect]
     Active Substance: TERIPARATIDE
     Indication: OSTEOPOROSIS
     Dosage: 20 UG, DAILY (1/D)
     Dates: start: 201003, end: 201007

REACTIONS (17)
  - Chills [Unknown]
  - Bone pain [Unknown]
  - Flatulence [Unknown]
  - Nasopharyngitis [Unknown]
  - Arthralgia [Unknown]
  - Tremor [Unknown]
  - Pain [Unknown]
  - Abdominal distension [Unknown]
  - Abdominal discomfort [Unknown]
  - Anxiety [Unknown]
  - Gastrooesophageal reflux disease [Unknown]
  - Chest pain [Unknown]
  - Constipation [Not Recovered/Not Resolved]
  - Adverse event [Unknown]
  - Memory impairment [Unknown]
  - Abdominal pain upper [Unknown]
  - Influenza like illness [Unknown]

NARRATIVE: CASE EVENT DATE: 201005
